FAERS Safety Report 7312507-8 (Version None)
Quarter: 2011Q1

REPORT INFORMATION
  Report Type: 
  Country: None (occurrence: None)
  Receive Date: 20110224
  Receipt Date: 20110210
  Transmission Date: 20110831
  Serious: Yes (Death)
  Sender: FDA-Public Use
  Company Number: US-CELGENEUS-163-20785-11010888

PATIENT
  Sex: Male

DRUGS (4)
  1. THALOMID [Suspect]
     Route: 048
     Dates: start: 20100801
  2. THALOMID [Suspect]
     Route: 048
     Dates: start: 20080401
  3. THALOMID [Suspect]
     Route: 048
     Dates: start: 20040801
  4. THALOMID [Suspect]
     Indication: MULTIPLE MYELOMA
     Dosage: 200-300MG
     Route: 048
     Dates: start: 20041001

REACTIONS (1)
  - MULTIPLE MYELOMA [None]
